FAERS Safety Report 5418200-0 (Version None)
Quarter: 2007Q3

REPORT INFORMATION
  Report Type: 
  Country: None (occurrence: None)
  Receive Date: 20070817
  Receipt Date: 20070815
  Transmission Date: 20080115
  Serious: Yes (Other)
  Sender: FDA-Public Use
  Company Number: JP-GENENTECH-245723

PATIENT
  Age: 16 Year
  Sex: Female

DRUGS (1)
  1. SOMATROPIN [Suspect]
     Indication: PRADER-WILLI SYNDROME
     Dosage: UNK, UNKNOWN
     Route: 058

REACTIONS (1)
  - CARDIAC TAMPONADE [None]
